FAERS Safety Report 13607365 (Version 4)
Quarter: 2017Q4

REPORT INFORMATION
  Report Type: Report from Study
  Country: None (occurrence: BR)
  Receive Date: 20170602
  Receipt Date: 20171005
  Transmission Date: 20180320
  Serious: Yes (Other)
  Sender: FDA-Public Use
  Company Number: BR-ABBVIE-17K-020-1990013-00

PATIENT
  Age: 43 Year
  Sex: Male
  Weight: 85 kg

DRUGS (4)
  1. HUMIRA [Suspect]
     Active Substance: ADALIMUMAB
     Indication: PSORIATIC ARTHROPATHY
     Route: 058
     Dates: start: 20150222, end: 201705
  2. METHOTREXATE. [Concomitant]
     Active Substance: METHOTREXATE
     Indication: PRODUCT USED FOR UNKNOWN INDICATION
  3. AZULFIDINE [Concomitant]
     Active Substance: SULFASALAZINE
     Indication: PSORIATIC ARTHROPATHY
     Route: 048
     Dates: start: 201703
  4. SULFASALAZINE. [Concomitant]
     Active Substance: SULFASALAZINE
     Indication: PRODUCT USED FOR UNKNOWN INDICATION

REACTIONS (29)
  - Gastritis [Unknown]
  - Lymphadenitis [Unknown]
  - Duodenitis [Unknown]
  - Influenza [Recovered/Resolved]
  - Gastritis [Unknown]
  - Drug ineffective [Not Recovered/Not Resolved]
  - Ileal ulcer [Unknown]
  - Retching [Not Recovered/Not Resolved]
  - Intervertebral disc protrusion [Not Recovered/Not Resolved]
  - C-reactive protein increased [Unknown]
  - Reflux gastritis [Recovered/Resolved]
  - Cough [Not Recovered/Not Resolved]
  - Iron deficiency anaemia [Not Recovered/Not Resolved]
  - Chronic gastritis [Not Recovered/Not Resolved]
  - Crohn^s disease [Unknown]
  - Nephrolithiasis [Recovered/Resolved]
  - Pain [Not Recovered/Not Resolved]
  - Gingival disorder [Unknown]
  - Renal colic [Recovered/Resolved]
  - Immunodeficiency [Unknown]
  - Sacroiliitis [Not Recovered/Not Resolved]
  - Drug ineffective [Unknown]
  - Diarrhoea [Recovered/Resolved]
  - Vomiting [Recovered/Resolved]
  - Renal disorder [Recovered/Resolved]
  - Hiatus hernia [Recovered/Resolved]
  - Hiatus hernia [Unknown]
  - Large intestine erosion [Unknown]
  - Nausea [Unknown]

NARRATIVE: CASE EVENT DATE: 2017
